FAERS Safety Report 9259988 (Version 2)
Quarter: 2013Q3

REPORT INFORMATION
  Report Type: Spontaneous
  Country: US (occurrence: US)
  Receive Date: 20130429
  Receipt Date: 20130916
  Transmission Date: 20140515
  Serious: Yes (Other)
  Sender: FDA-Public Use
  Company Number: US-BAYER-2013-051159

PATIENT
  Age: 39 Year
  Sex: Female

DRUGS (5)
  1. YAZ [Suspect]
  2. ZANTAC [Concomitant]
     Route: 048
  3. IMITREX [Concomitant]
     Route: 048
  4. FIORICET [Concomitant]
     Route: 048
  5. ADVIL [Concomitant]

REACTIONS (1)
  - Cerebral infarction [Recovered/Resolved]
